FAERS Safety Report 10278351 (Version 3)
Quarter: 2014Q3

REPORT INFORMATION
  Report Type: Spontaneous
  Country: JP (occurrence: JP)
  Receive Date: 20140704
  Receipt Date: 20140813
  Transmission Date: 20150326
  Serious: Yes (Hospitalization, Other)
  Sender: FDA-Public Use
  Company Number: JP-BRISTOL-MYERS SQUIBB COMPANY-21144407

PATIENT
  Age: 65 Year
  Sex: Male
  Weight: 44 kg

DRUGS (7)
  1. MAGNESIUM OXIDE. [Concomitant]
     Active Substance: MAGNESIUM OXIDE
  2. ERBITUX [Suspect]
     Active Substance: CETUXIMAB
     Indication: COLON CANCER
     Dosage: (400 MG/M2)/ 382.5 MG(250 MG/M2/ 300 MG (210 MG/M2).?382.5 MG?22MAY-05JUN14?300MG:12JUN-12JUN14
     Route: 041
     Dates: start: 20140507, end: 20140507
  3. LOXOPROFEN [Concomitant]
     Active Substance: LOXOPROFEN
  4. DOMPERIDONE [Concomitant]
     Active Substance: DOMPERIDONE
  5. PREGABALIN. [Concomitant]
     Active Substance: PREGABALIN
  6. CHLORPHENIRAMINE MALEATE. [Concomitant]
     Active Substance: CHLORPHENIRAMINE MALEATE
     Indication: PREMEDICATION
  7. DEXAMETHASONE SODIUM PHOSPHATE [Concomitant]
     Active Substance: DEXAMETHASONE SODIUM PHOSPHATE
     Indication: PREMEDICATION

REACTIONS (4)
  - Rash [Unknown]
  - Atrial fibrillation [Unknown]
  - Chills [Recovered/Resolved]
  - Infusion related reaction [Recovered/Resolved]

NARRATIVE: CASE EVENT DATE: 20140507
